FAERS Safety Report 21353231 (Version 1)
Quarter: 2022Q3

REPORT INFORMATION
  Report Type: Spontaneous
  Country: US (occurrence: US)
  Receive Date: 20220920
  Receipt Date: 20220920
  Transmission Date: 20221027
  Serious: Yes (Other)
  Sender: FDA-Public Use
  Company Number: US-STRIDES ARCOLAB LIMITED-2022SP010489

PATIENT
  Age: 42 Year
  Sex: Male

DRUGS (4)
  1. DEXAMETHASONE [Suspect]
     Active Substance: DEXAMETHASONE
     Indication: Cystoid macular oedema
     Dosage: 0.7 MILLIGRAM, IMPLANT INJECTIONS IN LEFT EYE
  2. PREDNISOLONE [Suspect]
     Active Substance: PREDNISOLONE
     Indication: Cystoid macular oedema
     Dosage: UNK
     Route: 048
  3. MYCOPHENOLATE SODIUM [Suspect]
     Active Substance: MYCOPHENOLATE SODIUM
     Indication: Drug therapy
     Dosage: 1440 MILLIGRAM PER DAY
     Route: 065
  4. REMICADE [Concomitant]
     Active Substance: INFLIXIMAB
     Indication: Eye inflammation
     Dosage: 5 MILLIGRAM/KILOGRAM
     Route: 042

REACTIONS (1)
  - Upper respiratory tract infection [Unknown]
